FAERS Safety Report 16675547 (Version 2)
Quarter: 2019Q3

REPORT INFORMATION
  Report Type: Report from Study
  Country: US (occurrence: US)
  Receive Date: 20190806
  Receipt Date: 20190826
  Transmission Date: 20191004
  Serious: Yes (Hospitalization)
  Sender: FDA-Public Use
  Company Number: US-ACTELION-A-NJ2019-193927

PATIENT
  Age: 74 Year
  Sex: Female
  Weight: 74.38 kg

DRUGS (4)
  1. ADCIRCA [Concomitant]
     Active Substance: TADALAFIL
  2. AMBRISENTAN [Concomitant]
     Active Substance: AMBRISENTAN
  3. UPTRAVI [Suspect]
     Active Substance: SELEXIPAG
     Indication: PULMONARY ARTERIAL HYPERTENSION
     Dosage: 600 MCG, BID
     Route: 048
  4. RANITIDINE. [Concomitant]
     Active Substance: RANITIDINE

REACTIONS (12)
  - Gastrointestinal vascular malformation haemorrhagic [Unknown]
  - Nausea [Unknown]
  - Diarrhoea [Unknown]
  - Haematemesis [Unknown]
  - Hiatus hernia [Unknown]
  - Headache [Unknown]
  - Gastritis erosive [Unknown]
  - Dyspepsia [Unknown]
  - Gastric haemorrhage [Unknown]
  - Gastrooesophageal reflux disease [Unknown]
  - Influenza like illness [Unknown]
  - Pain [Unknown]

NARRATIVE: CASE EVENT DATE: 20190724
